FAERS Safety Report 5515640-6 (Version None)
Quarter: 2007Q4

REPORT INFORMATION
  Report Type: 
  Country: None (occurrence: None)
  Receive Date: 20071113
  Receipt Date: 20070719
  Transmission Date: 20080405
  Serious: No
  Sender: FDA-Public Use
  Company Number: A0665267A

PATIENT
  Age: 79 Year
  Sex: Female

DRUGS (4)
  1. COREG [Suspect]
     Indication: HYPERTENSION
     Route: 048
  2. PAROXETINE [Suspect]
     Dosage: 20MG PER DAY
     Route: 048
  3. PAXIL [Concomitant]
  4. COREG [Concomitant]

REACTIONS (3)
  - DECREASED ACTIVITY [None]
  - FEELING ABNORMAL [None]
  - SLUGGISHNESS [None]
